FAERS Safety Report 7415426-1 (Version None)
Quarter: 2011Q2

REPORT INFORMATION
  Report Type: 
  Country: None (occurrence: None)
  Receive Date: 20110414
  Receipt Date: 20110402
  Transmission Date: 20111010
  Serious: Yes (Hospitalization, Other)
  Sender: FDA-Public Use
  Company Number: KR-PAR PHARMACEUTICAL, INC-2011SCPR002851

PATIENT

DRUGS (2)
  1. DEXAMETHASONE [Suspect]
     Indication: DEXAMETHASONE SUPPRESSION TEST
     Dosage: 0.5 MG, EVERY 6 HOURS
     Route: 048
  2. DEXAMETHASONE [Suspect]
     Dosage: 2 MG, EVERY 6 HOURS
     Route: 048

REACTIONS (1)
  - PHAEOCHROMOCYTOMA CRISIS [None]
